FAERS Safety Report 25655457 (Version 1)
Quarter: 2025Q3

REPORT INFORMATION
  Report Type: Report from Study
  Country: US (occurrence: US)
  Receive Date: 20250807
  Receipt Date: 20250807
  Transmission Date: 20251020
  Serious: Yes (Other)
  Sender: AGIOS PHARMACEUTICALS
  Company Number: US-AGIOS-2508US04406

PATIENT
  Age: 67 Year
  Sex: Female

DRUGS (2)
  1. MITAPIVAT [Suspect]
     Active Substance: MITAPIVAT
     Indication: Pyruvate kinase deficiency anaemia
     Route: 048
     Dates: start: 202506
  2. ELIQUIS [Concomitant]
     Active Substance: APIXABAN
     Indication: Atrial fibrillation

REACTIONS (5)
  - Atrial fibrillation [Recovering/Resolving]
  - Emotional disorder [Recovering/Resolving]
  - Central venous catheter removal [Recovering/Resolving]
  - Haemoglobin decreased [Recovering/Resolving]
  - Haematocrit abnormal [Recovering/Resolving]

NARRATIVE: CASE EVENT DATE: 20250707
